FAERS Safety Report 6885918-2 (Version None)
Quarter: 2010Q3

REPORT INFORMATION
  Report Type: 
  Country: None (occurrence: None)
  Receive Date: 20100729
  Receipt Date: 20080818
  Transmission Date: 20110219
  Serious: Yes (Other)
  Sender: FDA-Public Use
  Company Number: US-PFIZER INC-2008049154

PATIENT
  Sex: Male
  Weight: 77 kg

DRUGS (5)
  1. CELEBREX [Suspect]
     Indication: ARTHRITIS
     Dates: start: 20080522, end: 20080523
  2. VANCOMYCIN [Concomitant]
     Indication: STAPHYLOCOCCAL INFECTION
     Route: 042
  3. BACTRIM [Concomitant]
     Indication: STAPHYLOCOCCAL INFECTION
  4. IBUPROFEN TABLETS [Concomitant]
  5. TRANDOLAPRIL [Concomitant]
     Indication: HYPERTENSION

REACTIONS (2)
  - LIP SWELLING [None]
  - SWELLING FACE [None]
